FAERS Safety Report 8201540-X (Version None)
Quarter: 2012Q1

REPORT INFORMATION
  Report Type: 
  Country: None (occurrence: None)
  Receive Date: 20120312
  Receipt Date: 20120228
  Transmission Date: 20120608
  Serious: Yes (Hospitalization)
  Sender: FDA-Public Use
  Company Number: JP-GLAXOSMITHKLINE-B0785259A

PATIENT
  Sex: Female

DRUGS (6)
  1. LAMICTAL [Suspect]
     Indication: EPILEPSY
     Dosage: 25MG ALTERNATE DAYS
     Route: 048
     Dates: start: 20120205, end: 20120217
  2. CIPROFLOXACIN [Suspect]
     Indication: NASOPHARYNGITIS
     Route: 065
  3. VALPROATE SODIUM [Concomitant]
     Indication: EPILEPSY
     Dosage: 1.5G PER DAY
     Route: 048
     Dates: start: 20090301
  4. LAMICTAL [Suspect]
     Dosage: 25MG PER DAY
     Route: 048
     Dates: start: 20120218, end: 20120227
  5. AMOXICILLIN [Suspect]
     Indication: NASOPHARYNGITIS
     Route: 048
     Dates: start: 20120217
  6. ACETAMINOPHEN [Suspect]
     Indication: NASOPHARYNGITIS
     Route: 065
     Dates: start: 20120217

REACTIONS (9)
  - BLOOD LACTATE DEHYDROGENASE INCREASED [None]
  - LIVER DISORDER [None]
  - ALANINE AMINOTRANSFERASE INCREASED [None]
  - ASPARTATE AMINOTRANSFERASE INCREASED [None]
  - RASH [None]
  - DRUG ERUPTION [None]
  - PYREXIA [None]
  - GAMMA-GLUTAMYLTRANSFERASE INCREASED [None]
  - C-REACTIVE PROTEIN INCREASED [None]
